FAERS Safety Report 21967959 (Version 1)
Quarter: 2023Q1

REPORT INFORMATION
  Report Type: Spontaneous
  Country: US (occurrence: None)
  Receive Date: 20230207
  Receipt Date: 20230207
  Transmission Date: 20230418
  Serious: Yes (Other)
  Sender: FDA-Public Use
  Company Number: None

PATIENT
  Age: 74 Year
  Sex: Male
  Weight: 85.28 kg

DRUGS (14)
  1. PANTOPRAZOLE SODIUM [Suspect]
     Active Substance: PANTOPRAZOLE SODIUM
     Indication: Gastrooesophageal reflux disease
     Dosage: OTHER QUANTITY : 1 TABLET;?FREQUENCY : DAILY;?
     Route: 048
     Dates: start: 20230114, end: 20230115
  2. AMIODARONE HYDROCHLORIDE [Concomitant]
     Active Substance: AMIODARONE HYDROCHLORIDE
  3. MEXILETINE HCL [Concomitant]
     Active Substance: MEXILETINE HYDROCHLORIDE
  4. VASOTEC [Concomitant]
     Active Substance: ENALAPRIL MALEATE
  5. METOPROLOL SUCCINATE [Concomitant]
     Active Substance: METOPROLOL SUCCINATE
  6. PLAVIX [Concomitant]
     Active Substance: CLOPIDOGREL BISULFATE
  7. LASIX [Concomitant]
     Active Substance: FUROSEMIDE
  8. LIPITOR [Concomitant]
     Active Substance: ATORVASTATIN CALCIUM
  9. ZETIA [Concomitant]
     Active Substance: EZETIMIBE
  10. BAYER ASPIRIN [Concomitant]
     Active Substance: ASPIRIN
  11. KLOR-CON M20 [Concomitant]
     Active Substance: POTASSIUM CHLORIDE
  12. NITROSTAT [Concomitant]
     Active Substance: NITROGLYCERIN
  13. ATIVAN [Concomitant]
     Active Substance: LORAZEPAM
  14. IMPLANTED BOSTON SCIENTIC BI-VENTRICULAR DEFIBRILATOR MODEL N141 [Concomitant]

REACTIONS (3)
  - Irritability [None]
  - Rash pruritic [None]
  - Insomnia [None]

NARRATIVE: CASE EVENT DATE: 20230115
